FAERS Safety Report 19771019 (Version 2)
Quarter: 2021Q3

REPORT INFORMATION
  Report Type: Spontaneous
  Country: US (occurrence: US)
  Receive Date: 20210831
  Receipt Date: 20210831
  Transmission Date: 20211014
  Serious: No
  Sender: FDA-Public Use
  Company Number: US-INSUD PHARMA-2108US00895

PATIENT

DRUGS (1)
  1. CLOBETASOL CREAM [Suspect]
     Active Substance: CLOBETASOL
     Indication: PSORIASIS
     Dosage: USES DAILY
     Route: 061

REACTIONS (5)
  - Dry skin [Not Recovered/Not Resolved]
  - Product physical consistency issue [Unknown]
  - Product substitution issue [Unknown]
  - Drug ineffective [Not Recovered/Not Resolved]
  - Poor quality product administered [Unknown]

NARRATIVE: CASE EVENT DATE: 20210813
